FAERS Safety Report 16781380 (Version 2)
Quarter: 2019Q3

REPORT INFORMATION
  Report Type: Spontaneous
  Country: US (occurrence: US)
  Receive Date: 20190906
  Receipt Date: 20190917
  Transmission Date: 20191005
  Serious: No
  Sender: FDA-Public Use
  Company Number: US-SA-2019SA243328

PATIENT
  Age: 57 Year
  Sex: Female

DRUGS (1)
  1. DUPIXENT [Suspect]
     Active Substance: DUPILUMAB
     Indication: ECZEMA
     Dosage: 300 MG, QOW
     Route: 058
     Dates: start: 201907

REACTIONS (8)
  - Pain [Unknown]
  - Cheilitis [Unknown]
  - Rash macular [Unknown]
  - Pain [Unknown]
  - Alopecia [Unknown]
  - Ocular hyperaemia [Recovered/Resolved]
  - Abdominal pain upper [Unknown]
  - Conjunctivitis [Unknown]

NARRATIVE: CASE EVENT DATE: 2019
